FAERS Safety Report 6222443-6 (Version None)
Quarter: 2009Q2

REPORT INFORMATION
  Report Type: 
  Country: None (occurrence: None)
  Receive Date: 20090608
  Receipt Date: 20090606
  Transmission Date: 20091009
  Serious: Yes (Death)
  Sender: FDA-Public Use
  Company Number: US-GENENTECH-284054

PATIENT
  Sex: Male
  Weight: 79.365 kg

DRUGS (4)
  1. RITUXIMAB [Suspect]
     Indication: RHEUMATOID ARTHRITIS
     Dosage: 1000 MG, UNK
     Route: 042
  2. PAIN MEDICATION NOS [Concomitant]
     Indication: RHEUMATOID ARTHRITIS
  3. MEDICATION (UNK INGREDIENT) [Concomitant]
     Indication: BLOOD CHOLESTEROL
  4. CALTRATE + D [Concomitant]
     Indication: DRUG USE FOR UNKNOWN INDICATION

REACTIONS (5)
  - ABDOMINAL DISCOMFORT [None]
  - DEATH [None]
  - MUSCULAR WEAKNESS [None]
  - PAIN IN EXTREMITY [None]
  - WHEEZING [None]
